FAERS Safety Report 4633183-9 (Version None)
Quarter: 2005Q2

REPORT INFORMATION
  Report Type: 
  Country: None (occurrence: None)
  Receive Date: 20050411
  Receipt Date: 20050411
  Transmission Date: 20051028
  Serious: No
  Sender: FDA-Public Use
  Company Number: None

PATIENT
  Sex: Male

DRUGS (9)
  1. INTERFERON-ALPHA [Suspect]
     Indication: RENAL CELL CARCINOMA STAGE UNSPECIFIED
     Dosage: 9.0 MU SC 3X WEEK. CYCLE= 4WEEKS
     Route: 058
     Dates: start: 20050404
  2. BENADRYL [Concomitant]
  3. BLUE GREEN ALGAE BLEND [Concomitant]
  4. CELL FOOD [Concomitant]
  5. COQ 10 PLUS CARNITINE [Concomitant]
  6. CORAL CALCIUM PLUS [Concomitant]
  7. GREEN TEA EXTRACT [Concomitant]
  8. MSM [Concomitant]
  9. TYLENOL (CAPLET) [Concomitant]

REACTIONS (6)
  - CHILLS [None]
  - HAEMATURIA [None]
  - PAIN [None]
  - RENAL CELL CARCINOMA STAGE UNSPECIFIED [None]
  - URINARY TRACT INFECTION [None]
  - VOMITING [None]
